FAERS Safety Report 13092756 (Version 1)
Quarter: 2017Q1

REPORT INFORMATION
  Report Type: Spontaneous
  Country: US (occurrence: US)
  Receive Date: 20170105
  Receipt Date: 20170105
  Transmission Date: 20170428
  Serious: Yes (Life-Threatening, Hospitalization, Disabling, Other)
  Sender: FDA-Public Use
  Company Number: None

PATIENT
  Age: 57 Year
  Sex: Male
  Weight: 114.75 kg

DRUGS (1)
  1. AZILECT [Suspect]
     Active Substance: RASAGILINE MESYLATE
     Indication: PARKINSON^S DISEASE
     Dosage: ?          QUANTITY:1 TABLET(S);?
     Route: 048
     Dates: start: 20100915, end: 20151221

REACTIONS (11)
  - Swelling face [None]
  - Poor quality sleep [None]
  - Bedridden [None]
  - Affect lability [None]
  - Orthostatic intolerance [None]
  - Dystonia [None]
  - Fatigue [None]
  - Depression [None]
  - Altered state of consciousness [None]
  - Local swelling [None]
  - Hyperhidrosis [None]

NARRATIVE: CASE EVENT DATE: 20100915
